FAERS Safety Report 17520968 (Version 1)
Quarter: 2020Q1

REPORT INFORMATION
  Report Type: Report from Study
  Country: US (occurrence: US)
  Receive Date: 20200309
  Receipt Date: 20200309
  Transmission Date: 20200409
  Serious: No
  Sender: FDA-Public Use
  Company Number: NVSC2020US067014

PATIENT
  Age: 76 Year

DRUGS (1)
  1. ENTRESTO [Suspect]
     Active Substance: SACUBITRIL\VALSARTAN
     Indication: HYPOTENSION
     Dosage: 1.5 DF, QD (100 MG (49/51 MG) IN THE MORNING AND 50 MG (24/26 MG) IN THE NIGHT)
     Route: 048
     Dates: start: 202001

REACTIONS (5)
  - Asthenia [Unknown]
  - Movement disorder [Unknown]
  - Product use in unapproved indication [Unknown]
  - Wrong technique in product usage process [Unknown]
  - Product prescribing error [Unknown]

NARRATIVE: CASE EVENT DATE: 202001
